FAERS Safety Report 23381282 (Version 2)
Quarter: 2024Q1

REPORT INFORMATION
  Report Type: Other
  Country: MX (occurrence: None)
  Receive Date: 20240109
  Receipt Date: 20240124
  Transmission Date: 20240410
  Serious: No
  Sender: FDA-Public Use
  Company Number: MX-ROCHE-3487775

PATIENT
  Age: 35 Year
  Sex: Male
  Weight: 70 kg

DRUGS (3)
  1. OCREVUS [Suspect]
     Active Substance: OCRELIZUMAB
     Indication: Multiple sclerosis
     Route: 042
     Dates: start: 20230619
  2. OMEGA 3 [Concomitant]
     Active Substance: CAPSAICIN
     Indication: Nutritional supplementation
     Route: 048
     Dates: start: 20230620
  3. VITAMIN D3 [Concomitant]
     Active Substance: CHOLECALCIFEROL
     Indication: Nutritional supplementation
     Route: 048
     Dates: start: 20230620

REACTIONS (2)
  - Influenza [Recovered/Resolved]
  - Oropharyngeal pain [Recovered/Resolved]

NARRATIVE: CASE EVENT DATE: 20230619
